FAERS Safety Report 9107376 (Version 3)
Quarter: 2014Q1

REPORT INFORMATION
  Report Type: Spontaneous
  Country: US (occurrence: US)
  Receive Date: 20130221
  Receipt Date: 20140321
  Transmission Date: 20141002
  Serious: Yes (Hospitalization, Other)
  Sender: FDA-Public Use
  Company Number: US-PFIZER INC-2013065016

PATIENT
  Age: 60 Year
  Sex: Female

DRUGS (24)
  1. DILANTIN-125 [Suspect]
     Indication: ENCEPHALOPATHY
     Dosage: 16ML (100MG/4ML) SUSPENSION VIA J TUBE
     Dates: start: 20110107, end: 20110208
  2. DILANTIN-125 [Suspect]
     Indication: MENTAL STATUS CHANGES
  3. TYLENOL [Concomitant]
     Dosage: 650 MG, 4X/DAY
     Route: 054
     Dates: start: 20110201
  4. PROVENTIL [Concomitant]
     Dosage: 3 ML (2.5MG/3ML) BY NEBULATION AS NEEDED,
     Dates: start: 20110201
  5. DUONEB [Concomitant]
     Dosage: 3 ML (2.5MG/3ML) BY NEBULATION EVERY SIX HOURS
     Dates: start: 20110201
  6. NORVASC [Concomitant]
     Dosage: 10 MG, 1X/DAY
     Route: 048
     Dates: start: 20110201
  7. BAYER [Concomitant]
     Dosage: 325 MG, 1X/DAY (JEJUNOSTOMY FEEDING TUBE)
     Dates: start: 20110201
  8. PERIDEX [Concomitant]
     Dosage: 15 ML, (0.12 %) 2X/DAY (MUCOUS MEMBRANE)
     Dates: start: 20110201
  9. CATAPRES [Concomitant]
     Dosage: 0.1 MG, 4X/DAY
     Route: 048
     Dates: start: 20110201
  10. CATAPRES [Concomitant]
     Dosage: 0.3 MG, EVERY TUESDAY
     Route: 062
     Dates: start: 20110201
  11. COLACE [Concomitant]
     Dosage: 10 ML, (50MG/5ML) 1X/DAY (JEJUNOSTOMY FEEDING TUBE)
     Dates: start: 20110201
  12. PROCRIT [Concomitant]
     Dosage: 1 ML, (20,000 UNIT/ML) WEEKLY (ON THE SAME DAY EACH WEEK)
     Route: 058
     Dates: start: 20110201
  13. PEPCID [Concomitant]
     Dosage: 20 MG, 2X/DAY (JEJUNOSTOMY FEEDING TUBE)
     Dates: start: 20110201
  14. APRESOLINE [Concomitant]
     Dosage: 25 MG, 2X/DAY (JEJUNOSTOMY FEEDING TUBE)
     Dates: start: 20110201
  15. LANTUS [Concomitant]
     Dosage: 25 IU, (100 UNITS/ML) 1X/DAY
     Route: 058
     Dates: start: 20110201
  16. NOVOLIN-R [Concomitant]
     Dosage: 4-8 UNITS (100 UNITS/ML) EVERY SIX HOURS
     Route: 058
     Dates: start: 20110201
  17. KEPPRA [Concomitant]
     Dosage: 10 ML, 2X/DAY (JEJUNOSTOMY FEEDING TUBE)
     Dates: start: 20110201
  18. SYNTHROID [Concomitant]
     Dosage: 125 UG, 1X/DAY (JEJUNOSTOMY FEEDING TUBE) BEFORE BREAK FAST
     Dates: start: 20110201
  19. LOPRESSOR [Concomitant]
     Dosage: 100 MG, 2X/DAY (JEJUNOSTOMY FEEDING TUBE)
     Dates: start: 20110201
  20. MIRALAX [Concomitant]
     Dosage: 17 G, 1X/DAY
     Route: 048
     Dates: start: 20110201
  21. TRANSDERM SCOP [Concomitant]
     Dosage: 1.5 MG, EVERY 72 HOURS
     Route: 062
     Dates: start: 20110201
  22. ZOCOR [Concomitant]
     Dosage: 40 MG, 1X/DAY (AT BEDTIME)
     Route: 048
     Dates: start: 20110201
  23. RESTORIL [Concomitant]
     Dosage: 15 MG, BY NG TUBE AT BEDTIME AS NEEDED
     Dates: start: 20110201
  24. XENADERM [Concomitant]
     Dosage: UNK  THRICE DAILY
     Route: 061
     Dates: start: 20110201

REACTIONS (2)
  - Stevens-Johnson syndrome [Unknown]
  - Toxic epidermal necrolysis [Unknown]
